FAERS Safety Report 15108523 (Version 1)
Quarter: 2018Q3

REPORT INFORMATION
  Report Type: Spontaneous
  Country: FR (occurrence: FR)
  Receive Date: 20180705
  Receipt Date: 20180705
  Transmission Date: 20181010
  Serious: Yes (Hospitalization)
  Sender: FDA-Public Use
  Company Number: FR-SUN PHARMACEUTICAL INDUSTRIES LTD-2018RR-177449

PATIENT

DRUGS (3)
  1. DOLIPRANE [Suspect]
     Active Substance: ACETAMINOPHEN
     Indication: POISONING DELIBERATE
     Dosage: ()
     Route: 048
     Dates: start: 20180520, end: 20180520
  2. OLANZAPINE. [Suspect]
     Active Substance: OLANZAPINE
     Indication: POISONING DELIBERATE
     Dosage: 56 DF
     Route: 048
     Dates: start: 20180520, end: 20180520
  3. CODOLIPRANE [Suspect]
     Active Substance: ACETAMINOPHEN\CODEINE PHOSPHATE
     Indication: POISONING DELIBERATE
     Dosage: ()
     Route: 048
     Dates: start: 20180520, end: 20180520

REACTIONS (4)
  - Electroencephalogram abnormal [Recovered/Resolved]
  - Somnolence [Recovered/Resolved]
  - Hypokalaemia [Recovered/Resolved]
  - Disorientation [Recovered/Resolved]

NARRATIVE: CASE EVENT DATE: 20180520
